FAERS Safety Report 4289250-5 (Version None)
Quarter: 2004Q1

REPORT INFORMATION
  Report Type: 
  Country: None (occurrence: None)
  Receive Date: 20040206
  Receipt Date: 20040126
  Transmission Date: 20041129
  Serious: Yes (Hospitalization)
  Sender: FDA-Public Use
  Company Number: 04P-163-0248449-00

PATIENT
  Age: 38 Year
  Sex: Female
  Weight: 54.8852 kg

DRUGS (6)
  1. KALETRA [Suspect]
     Indication: HIV INFECTION
     Dosage: 3 TABLET, 2 IN 1 D
     Dates: start: 20030201, end: 20030901
  2. NEFAZODONE HCL [Concomitant]
  3. LEVOTHYROXINE SODIUM [Concomitant]
  4. FLUCONAZOLE [Concomitant]
  5. DRONABINOL [Concomitant]
  6. ZIDOVUDINE W/LAMIVUDINE [Concomitant]

REACTIONS (1)
  - PORPHYRIA NON-ACUTE [None]
